FAERS Safety Report 5787302-1 (Version None)
Quarter: 2008Q2

REPORT INFORMATION
  Report Type: 
  Country: None (occurrence: None)
  Receive Date: 20080623
  Receipt Date: 20080623
  Transmission Date: 20081010
  Serious: Yes (Other)
  Sender: FDA-Public Use
  Company Number: None

PATIENT
  Age: 47 Year
  Sex: Female
  Weight: 63.5036 kg

DRUGS (1)
  1. EQUATE WOMEN'S ONE DAILY W/CA, LEINER HEALTH PRODUCTS [Suspect]
     Dosage: ONE TABLET DAILY ONCE EVERY DAY
     Route: 048
     Dates: start: 20080610, end: 20080620

REACTIONS (2)
  - NAUSEA [None]
  - VOMITING [None]
